FAERS Safety Report 9286122 (Version 5)
Quarter: 2013Q4

REPORT INFORMATION
  Report Type: Spontaneous
  Country: US (occurrence: US)
  Receive Date: 20130513
  Receipt Date: 20131016
  Transmission Date: 20140711
  Serious: Yes (Hospitalization, Other)
  Sender: FDA-Public Use
  Company Number: US-009507513-1305USA005498

PATIENT
  Sex: Female
  Weight: 68.27 kg

DRUGS (3)
  1. NUVARING [Suspect]
     Indication: CONTRACEPTION
     Dosage: UNK
     Route: 067
     Dates: start: 200609, end: 200909
  2. NUVARING [Suspect]
     Dosage: UNK
     Route: 067
     Dates: start: 20110224, end: 20110701
  3. NUVARING [Suspect]
     Dosage: UNK

REACTIONS (13)
  - Septic shock [Unknown]
  - Pulmonary embolism [Unknown]
  - Atrial flutter [Unknown]
  - Maternal exposure before pregnancy [Recovered/Resolved]
  - Pelvic infection [Unknown]
  - Blighted ovum [Recovered/Resolved]
  - Pulmonary infarction [Unknown]
  - Deep vein thrombosis [Unknown]
  - Abortion spontaneous [Recovered/Resolved]
  - Cellulitis [Unknown]
  - Thrombophlebitis superficial [Unknown]
  - Febrile convulsion [Unknown]
  - Chest pain [Recovering/Resolving]
